FAERS Safety Report 7568070-X (Version None)
Quarter: 2011Q2

REPORT INFORMATION
  Report Type: 
  Country: None (occurrence: None)
  Receive Date: 20110623
  Receipt Date: 20110614
  Transmission Date: 20111010
  Serious: Yes (Hospitalization)
  Sender: FDA-Public Use
  Company Number: FR-KINGPHARMUSA00001-K201100706

PATIENT
  Age: 69 Year
  Sex: Male

DRUGS (19)
  1. PLAVIX [Suspect]
     Indication: ACUTE CORONARY SYNDROME
     Dosage: 75 MG, QD
     Route: 048
     Dates: start: 20110415, end: 20110416
  2. PERMIXON [Concomitant]
  3. AUGMENTIN '125' [Suspect]
     Indication: BRONCHITIS
     Dosage: UNK
     Route: 048
     Dates: start: 20110331, end: 20110408
  4. SIMVASTATIN [Suspect]
     Indication: HYPERCHOLESTEROLAEMIA
     Dosage: 20 MG, QD
     Route: 048
     Dates: start: 20110416, end: 20110506
  5. ARIXTRA [Suspect]
     Indication: ACUTE CORONARY SYNDROME
     Dosage: 2.5 ML, QD
     Route: 058
     Dates: start: 20110415, end: 20110416
  6. REPAGLINIDE [Concomitant]
  7. ACETAMINOPHEN [Concomitant]
  8. ZECLAR [Concomitant]
     Dosage: UNK
     Dates: start: 20110408
  9. BECOTIDE [Concomitant]
  10. VASTAREL [Concomitant]
  11. ASPIRIN [Concomitant]
     Dosage: UNK
     Dates: start: 20110401
  12. EZETIMIBE [Concomitant]
     Dosage: UNK
     Dates: start: 20110401
  13. BISOPROLOL FUMARATE [Concomitant]
     Dosage: UNK
     Dates: start: 20110401
  14. VENTOLIN [Concomitant]
  15. LEXOMIL [Concomitant]
  16. ALTACE [Suspect]
     Indication: MYOCARDIAL ISCHAEMIA
     Dosage: 1.25 MG, QD
     Route: 048
     Dates: start: 20110415, end: 20110507
  17. PREDNISOLONE [Concomitant]
     Dosage: UNK
     Dates: start: 20110408, end: 20110412
  18. AVODART [Concomitant]
  19. SULFARLEM [Concomitant]

REACTIONS (7)
  - RASH [None]
  - PRURITUS [None]
  - PYREXIA [None]
  - EOSINOPHILIA [None]
  - DRUG RASH WITH EOSINOPHILIA AND SYSTEMIC SYMPTOMS [None]
  - MYOPERICARDITIS [None]
  - ASTHENIA [None]
